FAERS Safety Report 16729782 (Version 8)
Quarter: 2020Q2

REPORT INFORMATION
  Report Type: Spontaneous
  Country: US (occurrence: US)
  Receive Date: 20190822
  Receipt Date: 20200611
  Transmission Date: 20200713
  Serious: Yes (Other)
  Sender: FDA-Public Use
  Company Number: US-PFIZER INC-2019346596

PATIENT
  Age: 73 Year
  Sex: Female
  Weight: 78.84 kg

DRUGS (2)
  1. LYRICA [Suspect]
     Active Substance: PREGABALIN
     Dosage: 75 MG, ONCE DAILY (AT NIGHT)
     Route: 048
  2. LYRICA [Suspect]
     Active Substance: PREGABALIN
     Indication: TRIGEMINAL NEURALGIA
     Dosage: 50 MG, UNK
     Route: 048

REACTIONS (6)
  - Memory impairment [Unknown]
  - Cerebrovascular accident [Unknown]
  - Aphonia [Unknown]
  - Drug ineffective [Unknown]
  - Intentional product misuse [Unknown]
  - Product dose omission [Unknown]
